FAERS Safety Report 4642322-5 (Version None)
Quarter: 2005Q2

REPORT INFORMATION
  Report Type: 
  Country: None (occurrence: None)
  Receive Date: 20050420
  Receipt Date: 20050405
  Transmission Date: 20051028
  Serious: Yes (Other)
  Sender: FDA-Public Use
  Company Number: 200502859

PATIENT
  Age: 64 Year
  Sex: Female

DRUGS (2)
  1. BOTOX [Suspect]
     Indication: BLEPHAROSPASM
     Dosage: 120 UNITS ONCE IM
     Route: 030
  2. BOTOX [Suspect]
     Indication: BLEPHAROSPASM
     Dosage: 160 UNITS ONCE IM
     Route: 030

REACTIONS (5)
  - DRUG EFFECT DECREASED [None]
  - DYSPHAGIA [None]
  - EYELID PTOSIS [None]
  - SENSORY LOSS [None]
  - THERAPY NON-RESPONDER [None]
